FAERS Safety Report 8554961-X (Version None)
Quarter: 2012Q3

REPORT INFORMATION
  Report Type: 
  Country: None (occurrence: None)
  Receive Date: 20120731
  Receipt Date: 20120724
  Transmission Date: 20120928
  Serious: Yes (Life-Threatening, Hospitalization)
  Sender: FDA-Public Use
  Company Number: US-PFIZER INC-2012111290

PATIENT
  Sex: Female
  Weight: 90.7 kg

DRUGS (17)
  1. AXITINIB [Suspect]
     Indication: THYROID CANCER METASTATIC
     Dosage: 3 MG, 2X/DAY
     Route: 048
     Dates: start: 20081008, end: 20120504
  2. NORVASC [Concomitant]
     Indication: HYPERTENSION
     Dosage: 5 MG, 1X/DAY
     Route: 048
     Dates: start: 20100101, end: 20120505
  3. ASPIRIN [Concomitant]
     Indication: CORONARY ARTERY DISEASE
     Dosage: 81 MG, 1X/DAY
     Route: 048
     Dates: start: 20100101, end: 20120506
  4. VITAMIN D [Concomitant]
     Indication: VITAMIN SUPPLEMENTATION
     Dosage: 1, 1X/DAY
     Route: 048
     Dates: start: 20120101, end: 20120505
  5. SIMVASTATIN [Concomitant]
     Indication: HYPERLIPIDAEMIA
  6. MUCINEX [Concomitant]
     Indication: NASAL CONGESTION
     Dosage: UNK  PRN
     Route: 048
     Dates: end: 20120505
  7. FISH OIL [Concomitant]
     Indication: BLOOD CHOLESTEROL
  8. ATIVAN [Concomitant]
     Indication: ANXIETY
  9. LOMOTIL [Concomitant]
     Indication: DIARRHOEA
     Dosage: 2.5 MG, AS NEEDED
     Route: 048
     Dates: start: 20100101, end: 20120505
  10. FISH OIL [Concomitant]
     Indication: CORONARY ARTERY DISEASE
     Dosage: 1000 MG, 2X/DAY
     Route: 048
     Dates: start: 20110101, end: 20120505
  11. ZANTAC [Concomitant]
     Indication: GASTROOESOPHAGEAL REFLUX DISEASE
     Dosage: 150 MG, AS NEEDED
     Route: 048
     Dates: end: 20120505
  12. ATIVAN [Concomitant]
     Indication: NAUSEA
     Dosage: 1-2 MG,AS NEEDED
     Route: 048
     Dates: start: 20100101
  13. FAMOTIDINE [Concomitant]
     Indication: GASTROOESOPHAGEAL REFLUX DISEASE
     Dosage: 20 MG, 1X/DAY
     Route: 048
     Dates: start: 20120503
  14. SIMVASTATIN [Concomitant]
     Indication: CORONARY ARTERY DISEASE
     Dosage: 40 MG, 1X/DAY
     Route: 048
     Dates: start: 20100101, end: 20120505
  15. LEVOXYL [Concomitant]
     Indication: THYROID HORMONE REPLACEMENT THERAPY
     Dosage: 250 MG, 1X/DAY
     Route: 048
     Dates: start: 19960101
  16. CELEXA [Concomitant]
     Indication: DEPRESSION
     Dosage: 40 MG, 1X/DAY
     Route: 048
     Dates: start: 20080101
  17. IMODIUM [Concomitant]
     Indication: DIARRHOEA
     Dosage: 2-4 MG, AS NEEDED
     Route: 048
     Dates: start: 20080101

REACTIONS (2)
  - CARDIO-RESPIRATORY ARREST [None]
  - ACUTE CORONARY SYNDROME [None]
